FAERS Safety Report 25684362 (Version 3)
Quarter: 2025Q3

REPORT INFORMATION
  Report Type: Spontaneous
  Country: JP (occurrence: JP)
  Receive Date: 20250815
  Receipt Date: 20250828
  Transmission Date: 20251021
  Serious: Yes (Death, Other)
  Sender: GILEAD
  Company Number: JP-GILEAD-2025-0723441

PATIENT
  Age: 88 Year
  Sex: Female

DRUGS (6)
  1. VEKLURY [Suspect]
     Active Substance: REMDESIVIR
     Indication: COVID-19
     Route: 065
     Dates: start: 20250801, end: 20250801
  2. VEKLURY [Suspect]
     Active Substance: REMDESIVIR
     Route: 065
     Dates: start: 20250802, end: 20250803
  3. INSULIN NOS [Concomitant]
     Active Substance: INSULIN NOS
  4. INSULIN NOS [Concomitant]
     Active Substance: INSULIN NOS
     Dates: start: 20250804
  5. BISOPROLOL [Concomitant]
     Active Substance: BISOPROLOL
  6. ISOSORBIDE DINITRATE [Concomitant]
     Active Substance: ISOSORBIDE DINITRATE

REACTIONS (3)
  - Hyperglycaemia [Unknown]
  - COVID-19 pneumonia [Fatal]
  - Hypoglycaemia [Recovered/Resolved]

NARRATIVE: CASE EVENT DATE: 20250803
